FAERS Safety Report 4954575-4 (Version None)
Quarter: 2006Q1

REPORT INFORMATION
  Report Type: 
  Country: None (occurrence: None)
  Receive Date: 20060322
  Receipt Date: 20060307
  Transmission Date: 20060701
  Serious: Yes (Hospitalization)
  Sender: FDA-Public Use
  Company Number: 2006MP000312

PATIENT
  Age: 71 Year
  Sex: Male

DRUGS (5)
  1. AGGRASTAT [Suspect]
     Indication: MYOCARDIAL INFARCTION
     Dosage: IV
     Route: 042
     Dates: start: 20060302, end: 20060302
  2. ACETYLSALICYLIC ACID SRT [Concomitant]
  3. CLEXANE [Concomitant]
  4. DELIX [Concomitant]
  5. CONTRAST MEDIA [Concomitant]

REACTIONS (5)
  - GENERAL PHYSICAL CONDITION ABNORMAL [None]
  - HYPERSENSITIVITY [None]
  - LIVER FUNCTION TEST ABNORMAL [None]
  - SEPSIS [None]
  - SOMNOLENCE [None]
